FAERS Safety Report 17595083 (Version 1)
Quarter: 2020Q1

REPORT INFORMATION
  Report Type: Report from Study
  Country: CA (occurrence: CA)
  Receive Date: 20200328
  Receipt Date: 20200328
  Transmission Date: 20200409
  Serious: Yes (Other)
  Sender: FDA-Public Use
  Company Number: NVSC2020CA083512

PATIENT
  Age: 50 Year
  Sex: Female

DRUGS (1)
  1. SANDOSTATIN LAR DEPOT [Suspect]
     Active Substance: OCTREOTIDE ACETATE
     Indication: CARCINOID TUMOUR
     Dosage: 20 MG, QMO
     Route: 030
     Dates: start: 20200131

REACTIONS (5)
  - Hepatic mass [Unknown]
  - Thyroid mass [Unknown]
  - Nasopharyngitis [Recovering/Resolving]
  - Dry skin [Unknown]
  - Pulmonary mass [Unknown]

NARRATIVE: CASE EVENT DATE: 202003
